FAERS Safety Report 4361155-0 (Version None)
Quarter: 2004Q2

REPORT INFORMATION
  Report Type: 
  Country: None (occurrence: None)
  Receive Date: 20040511
  Receipt Date: 20031013
  Transmission Date: 20050107
  Serious: Yes (Hospitalization)
  Sender: FDA-Public Use
  Company Number: USA030843390

PATIENT
  Age: 13 Year
  Sex: Male
  Weight: 44 kg

DRUGS (10)
  1. STRATTERA [Suspect]
     Indication: ATTENTION DEFICIT/HYPERACTIVITY DISORDER
     Dosage: 40 MG/DAY
     Dates: start: 20030212, end: 20030310
  2. PROZAC [Suspect]
     Indication: DEPRESSION
     Dosage: 20 MG/DAY
     Dates: start: 20030101
  3. HUMABID (GUAIFENESIN) [Concomitant]
  4. CLARINEX [Concomitant]
  5. VITAMIN C [Concomitant]
  6. CALCIUM [Concomitant]
  7. SEROQUEL [Concomitant]
  8. ARIPIPRAZOLE [Concomitant]
  9. WELLBUTRIN [Concomitant]
  10. CONCERTA [Concomitant]

REACTIONS (12)
  - ABNORMAL BEHAVIOUR [None]
  - DROOLING [None]
  - GAIT DISTURBANCE [None]
  - HALLUCINATION, AUDITORY [None]
  - HOMICIDAL IDEATION [None]
  - PAIN [None]
  - POSTURE ABNORMAL [None]
  - PSYCHOMOTOR HYPERACTIVITY [None]
  - PSYCHOTIC DISORDER [None]
  - SCREAMING [None]
  - SOCIAL AVOIDANT BEHAVIOUR [None]
  - SOMNOLENCE [None]
